FAERS Safety Report 8590134 (Version 2)
Quarter: 2013Q2

REPORT INFORMATION
  Report Type: Spontaneous
  Country: US (occurrence: US)
  Receive Date: 20120601
  Receipt Date: 20130618
  Transmission Date: 20140414
  Serious: Yes (Disabling)
  Sender: FDA-Public Use
  Company Number: US-ASTRAZENECA-2012SE34561

PATIENT
  Age: 36 Year
  Sex: Female
  Weight: 88.5 kg

DRUGS (10)
  1. NEXIUM [Suspect]
     Dosage: ONCE DAILY
     Route: 048
     Dates: start: 20080721
  2. PRILOSEC OTC [Suspect]
     Route: 048
  3. RANITIDINE [Concomitant]
     Dates: start: 2008, end: 2009
  4. PEPTO-BISMOL [Concomitant]
     Dates: start: 2008, end: 2009
  5. ROLAIDS [Concomitant]
     Dates: start: 2008, end: 2009
  6. MYLANTA [Concomitant]
     Dates: start: 2008, end: 2009
  7. FAMOTIDINE [Concomitant]
     Dates: start: 20120911
  8. MULTIVITAMIN [Concomitant]
  9. FOLIC ACID [Concomitant]
  10. LORATADINE [Concomitant]

REACTIONS (10)
  - Abnormal behaviour [Unknown]
  - Osteoporosis [Unknown]
  - Multiple fractures [Unknown]
  - Back disorder [Unknown]
  - Angina pectoris [Unknown]
  - Calcium deficiency [Unknown]
  - Vitamin D deficiency [Unknown]
  - Cardiovascular disorder [Unknown]
  - Carpal tunnel syndrome [Unknown]
  - Depression [Unknown]
